FAERS Safety Report 10057354 (Version 1)
Quarter: 2014Q2

REPORT INFORMATION
  Report Type: Spontaneous
  Country: CH (occurrence: CH)
  Receive Date: 20140403
  Receipt Date: 20140403
  Transmission Date: 20141212
  Serious: Yes (Hospitalization)
  Sender: FDA-Public Use
  Company Number: CH-LUNDBECK-DKLU1098852

PATIENT
  Age: 7 Year
  Sex: Female

DRUGS (1)
  1. VIGABATRIN (TABLET) [Suspect]
     Indication: EPILEPSY
     Route: 048
     Dates: start: 20140116

REACTIONS (2)
  - Akathisia [Unknown]
  - Psychomotor hyperactivity [Unknown]
